FAERS Safety Report 8455021-9 (Version None)
Quarter: 2012Q2

REPORT INFORMATION
  Report Type: 
  Country: None (occurrence: None)
  Receive Date: 20120615
  Receipt Date: 20120615
  Transmission Date: 20120825
  Serious: Yes (Life-Threatening, Hospitalization)
  Sender: FDA-Public Use
  Company Number: None

PATIENT
  Sex: Female
  Weight: 75.7507 kg

DRUGS (1)
  1. ESTRADIOL [Suspect]
     Indication: HOT FLUSH
     Dates: start: 20080227

REACTIONS (1)
  - PULMONARY THROMBOSIS [None]
